FAERS Safety Report 20988355 (Version 1)
Quarter: 2022Q2

REPORT INFORMATION
  Report Type: Spontaneous
  Country: US (occurrence: None)
  Receive Date: 20220620
  Receipt Date: 20220620
  Transmission Date: 20220721
  Serious: Yes (Other)
  Sender: FDA-Public Use
  Company Number: None

PATIENT
  Age: 44 Year
  Sex: Female
  Weight: 136.8 kg

DRUGS (13)
  1. DULOXETINE [Suspect]
     Active Substance: DULOXETINE
     Indication: Depression
     Dosage: FREQUENCY : TWICE A DAY;?QUANTITY: 90 CAPSULES
     Route: 048
     Dates: start: 20220516
  2. DEVICE [Concomitant]
     Active Substance: DEVICE
  3. PANTOPRAZOLE [Concomitant]
     Active Substance: PANTOPRAZOLE
  4. DULOXETINE [Concomitant]
     Active Substance: DULOXETINE
  5. FLUOXETINE [Concomitant]
     Active Substance: FLUOXETINE HYDROCHLORIDE
  6. METHIMAZOLE [Concomitant]
     Active Substance: METHIMAZOLE
  7. VALSARTAN [Concomitant]
     Active Substance: VALSARTAN
  8. SPIRONOLACTONE [Concomitant]
     Active Substance: SPIRONOLACTONE
  9. ALPRAZOLAM [Concomitant]
     Active Substance: ALPRAZOLAM
  10. MELATONIN [Concomitant]
     Active Substance: MELATONIN
  11. women^s multivitamin [Concomitant]
  12. ASPIRIN [Concomitant]
     Active Substance: ASPIRIN
  13. NAPROXEN [Concomitant]
     Active Substance: NAPROXEN

REACTIONS (2)
  - Mental disorder [None]
  - Product substitution issue [None]

NARRATIVE: CASE EVENT DATE: 20220620
